FAERS Safety Report 9051838 (Version 1)
Quarter: 2013Q1

REPORT INFORMATION
  Report Type: Spontaneous
  Country: US (occurrence: US)
  Receive Date: 20130207
  Receipt Date: 20130207
  Transmission Date: 20140127
  Serious: Yes (Other)
  Sender: FDA-Public Use
  Company Number: US-BAYER-2013-015718

PATIENT
  Age: 31 Year
  Sex: Female

DRUGS (6)
  1. YASMIN [Suspect]
  2. OCELLA [Suspect]
     Indication: MENORRHAGIA
  3. MULTIVITAMIN [Concomitant]
  4. CALCIUM [CALCIUM] [Concomitant]
  5. VITAMIN D NOS [Concomitant]
  6. IRON [IRON] [Concomitant]

REACTIONS (1)
  - Deep vein thrombosis [Recovering/Resolving]
